FAERS Safety Report 19405100 (Version 1)
Quarter: 2021Q2

REPORT INFORMATION
  Report Type: Spontaneous
  Country: DE (occurrence: DE)
  Receive Date: 20210611
  Receipt Date: 20210611
  Transmission Date: 20210717
  Serious: Yes (Death, Hospitalization)
  Sender: FDA-Public Use
  Company Number: DE-TEVA-2021-DE-1920334

PATIENT
  Age: 65 Year
  Sex: Female

DRUGS (13)
  1. L?THYROX HEXAL 125MIKROGRAMM [Concomitant]
     Dosage: 125 MICROGRAM DAILY; 1?0?0?0
     Route: 048
  2. METOPROLOL. [Concomitant]
     Active Substance: METOPROLOL
     Dosage: 95 MILLIGRAM DAILY; 1?0?1?0
     Route: 048
  3. DABIGATRAN [Suspect]
     Active Substance: DABIGATRAN
     Dosage: 300 MILLIGRAM DAILY; 1?0?1?0
     Route: 048
  4. CALCIUM 1000 DURA [Concomitant]
     Dosage: 1000 MILLIGRAM DAILY; 1?0?0?0
     Route: 048
  5. PIPAMPERON [Concomitant]
     Active Substance: PIPAMPERONE HYDROCHLORIDE
     Dosage: 40 MILLIGRAM DAILY; 0?0?1?0
     Route: 048
  6. KALIUMCITRAT [Concomitant]
     Active Substance: POTASSIUM CITRATE
     Dosage: 40 MILLIMOL DAILY; 1?0?0?0
     Route: 048
  7. TORASEMID [Concomitant]
     Active Substance: TORSEMIDE
     Dosage: 20 MILLIGRAM DAILY; 1?1?0?0
     Route: 048
  8. SIMVASTATIN. [Concomitant]
     Active Substance: SIMVASTATIN
     Dosage: 3 DOSAGE FORMS DAILY; 20 MG, 0?0?3?0
     Route: 048
  9. MEXILETIN [Suspect]
     Active Substance: MEXILETINE
     Dosage: 800 MILLIGRAM DAILY; 1?1?1?1
     Route: 048
  10. VALPROAT ARISTO 300MG/G [Concomitant]
     Dosage: 300 MILLIGRAM DAILY; 0?0?1?0
     Route: 048
  11. IPRAMOL STERI?NEB 2,5MG/0,5MG [Concomitant]
     Dosage: 3 DOSAGE FORMS DAILY; 1?1?1?0, METERED DOSE INHALER
     Route: 055
  12. AMIODARON [Suspect]
     Active Substance: AMIODARONE
     Dosage: 200 MILLIGRAM DAILY; 1?0?0?0
     Route: 048
  13. RISPERIDON [Concomitant]
     Active Substance: RISPERIDONE
     Dosage: 1 MG, 1?0?2?0
     Route: 048

REACTIONS (4)
  - Retrograde amnesia [Unknown]
  - Hypotension [Unknown]
  - General physical health deterioration [Unknown]
  - Haematochezia [Unknown]
